FAERS Safety Report 7838054-2 (Version None)
Quarter: 2011Q4

REPORT INFORMATION
  Report Type: 
  Country: None (occurrence: None)
  Receive Date: 20111024
  Receipt Date: 20100319
  Transmission Date: 20120403
  Serious: No
  Sender: FDA-Public Use
  Company Number: US-BAYER-201017170NA

PATIENT
  Age: 70 Year
  Sex: Male

DRUGS (4)
  1. LEVITRA [Suspect]
     Indication: ERECTILE DYSFUNCTION
     Dosage: 10 MG, PRN
     Route: 048
  2. LEVITRA [Suspect]
  3. LEVITRA [Suspect]
  4. LEVITRA [Suspect]

REACTIONS (1)
  - PALPITATIONS [None]
